FAERS Safety Report 7030338-3 (Version None)
Quarter: 2010Q4

REPORT INFORMATION
  Report Type: 
  Country: None (occurrence: None)
  Receive Date: 20101006
  Receipt Date: 20100929
  Transmission Date: 20110411
  Serious: Yes (Hospitalization)
  Sender: FDA-Public Use
  Company Number: DE-US-EMD SERONO, INC.-7015828

PATIENT
  Sex: Female
  Weight: 61 kg

DRUGS (4)
  1. REBIF [Suspect]
     Indication: MULTIPLE SCLEROSIS
     Route: 058
     Dates: start: 20041102, end: 20070101
  2. REBIF [Suspect]
     Route: 058
     Dates: start: 20090101
  3. REBIF [Suspect]
     Route: 058
     Dates: end: 20100824
  4. FEMIGOA [Concomitant]
     Dates: start: 20100806, end: 20100824

REACTIONS (3)
  - CHEST DISCOMFORT [None]
  - RED BLOOD CELL COUNT DECREASED [None]
  - VIRAL INFECTION [None]
